FAERS Safety Report 24051174 (Version 3)
Quarter: 2024Q3

REPORT INFORMATION
  Report Type: Spontaneous
  Country: US (occurrence: US)
  Receive Date: 20240704
  Receipt Date: 20240927
  Transmission Date: 20241017
  Serious: No
  Sender: SANOFI AVENTIS
  Company Number: US-SA-SAC20240628000808

PATIENT
  Age: 27 Year
  Sex: Male

DRUGS (4)
  1. ELOCTATE [Suspect]
     Active Substance: EFMOROCTOCOG ALFA
     Indication: Factor VIII deficiency
     Dosage: 3700 U, QW
     Route: 042
     Dates: start: 201811
  2. ELOCTATE [Suspect]
     Active Substance: EFMOROCTOCOG ALFA
     Indication: Factor VIII deficiency
     Dosage: 3700 U, QW
     Route: 042
     Dates: start: 201811
  3. ELOCTATE [Suspect]
     Active Substance: EFMOROCTOCOG ALFA
     Dosage: 3700 U, PRN (EVERY 24 HOURS AS NEEDED FOR BREAKTHROUGH BLEEDS)
     Route: 042
     Dates: start: 201811
  4. ELOCTATE [Suspect]
     Active Substance: EFMOROCTOCOG ALFA
     Dosage: 3700 U, PRN (EVERY 24 HOURS AS NEEDED FOR BREAKTHROUGH BLEEDS)
     Route: 042
     Dates: start: 201811

REACTIONS (4)
  - Haemorrhage [Not Recovered/Not Resolved]
  - Contusion [Unknown]
  - Limb injury [Recovered/Resolved]
  - Traumatic haemorrhage [Recovered/Resolved]

NARRATIVE: CASE EVENT DATE: 20240617
